FAERS Safety Report 21122988 (Version 1)
Quarter: 2022Q3

REPORT INFORMATION
  Report Type: Spontaneous
  Country: CN (occurrence: None)
  Receive Date: 20220724
  Receipt Date: 20220724
  Transmission Date: 20221027
  Serious: Yes (Hospitalization)
  Sender: FDA-Public Use
  Company Number: 2022A259130

PATIENT
  Age: 20089 Day
  Sex: Female
  Weight: 55 kg

DRUGS (1)
  1. DAPAGLIFLOZIN [Suspect]
     Active Substance: DAPAGLIFLOZIN
     Indication: Diabetes mellitus
     Route: 048
     Dates: start: 20220528, end: 20220628

REACTIONS (4)
  - Diabetes mellitus inadequate control [Unknown]
  - Vision blurred [Unknown]
  - Retinal haemorrhage [Unknown]
  - Genital infection female [Recovering/Resolving]

NARRATIVE: CASE EVENT DATE: 20220628
